FAERS Safety Report 21215006 (Version 1)
Quarter: 2022Q3

REPORT INFORMATION
  Report Type: Spontaneous
  Country: IR (occurrence: None)
  Receive Date: 20220816
  Receipt Date: 20220816
  Transmission Date: 20221026
  Serious: Yes (Hospitalization, Other)
  Sender: FDA-Public Use
  Company Number: IR-Evus Pharmaceuticals, LLC-EPL202208-000076

PATIENT
  Age: 19 Year
  Sex: Female

DRUGS (1)
  1. NITROGLYCERIN [Suspect]
     Active Substance: NITROGLYCERIN
     Indication: Product used for unknown indication
     Dosage: 320 MG (50 TABLETS ABOUT 45 MINUTES BEFORE ADMISSION)
     Route: 048

REACTIONS (5)
  - Metabolic acidosis [Recovered/Resolved]
  - Toxicity to various agents [Unknown]
  - Hypotension [Recovered/Resolved]
  - Suicide attempt [Unknown]
  - Intentional overdose [Unknown]
